FAERS Safety Report 17204518 (Version 1)
Quarter: 2019Q4

REPORT INFORMATION
  Report Type: Spontaneous
  Country: None (occurrence: US)
  Receive Date: 20191226
  Receipt Date: 20191226
  Transmission Date: 20200122
  Serious: Yes (Hospitalization)
  Sender: FDA-Public Use
  Company Number: 276743

PATIENT
  Sex: Female

DRUGS (1)
  1. DIPHENHYDRAMINE HCL TABLETS 25 MG [Suspect]
     Active Substance: DIPHENHYDRAMINE HYDROCHLORIDE
     Indication: HYPERSENSITIVITY
     Route: 048

REACTIONS (2)
  - Hypoaesthesia oral [None]
  - Hypoaesthesia eye [None]
